FAERS Safety Report 6309953-8 (Version None)
Quarter: 2009Q3

REPORT INFORMATION
  Report Type: 
  Country: None (occurrence: None)
  Receive Date: 20090814
  Receipt Date: 20090807
  Transmission Date: 20100115
  Serious: Yes (Hospitalization)
  Sender: FDA-Public Use
  Company Number: B0588650A

PATIENT
  Age: 68 Year
  Sex: Female

DRUGS (9)
  1. LAMICTAL [Suspect]
     Indication: BIPOLAR DISORDER
     Dosage: 200MG PER DAY
     Route: 048
     Dates: start: 20090417, end: 20090511
  2. SOLIAN [Suspect]
     Indication: BIPOLAR DISORDER
     Dosage: 200MG PER DAY
     Route: 048
     Dates: start: 20090417, end: 20090511
  3. SINOGAN [Suspect]
     Indication: BIPOLAR DISORDER
     Dosage: 25MG TWICE PER DAY
     Route: 048
     Dates: start: 20090417
  4. FORTZAAR [Suspect]
     Indication: HYPERTENSION
     Route: 048
     Dates: start: 20090417, end: 20090511
  5. CLAVERSAL [Concomitant]
     Dosage: .5G TWICE PER DAY
     Route: 048
     Dates: start: 20090417
  6. LORMETAZEPAM [Concomitant]
     Indication: INSOMNIA
     Dosage: 2MG PER DAY
     Route: 048
  7. CAPTOPRIL [Concomitant]
  8. DOXAZOSINA [Concomitant]
  9. OMEPRAZOL [Concomitant]

REACTIONS (1)
  - HYPONATRAEMIA [None]
